FAERS Safety Report 25565070 (Version 1)
Quarter: 2025Q3

REPORT INFORMATION
  Report Type: Spontaneous
  Country: EU (occurrence: EU)
  Receive Date: 20250716
  Receipt Date: 20250716
  Transmission Date: 20251021
  Serious: Yes (Congenital Anomaly, Other)
  Sender: RANBAXY
  Company Number: EU-AFSSAPS-LY2025000580

PATIENT
  Sex: Male
  Weight: 0.5 kg

DRUGS (1)
  1. VENLAFAXINE [Suspect]
     Active Substance: VENLAFAXINE HYDROCHLORIDE
     Indication: Burnout syndrome
     Dosage: 37.5 MILLIGRAM, DAILY
     Route: 064
     Dates: start: 20230831, end: 20240529

REACTIONS (2)
  - Congenital diaphragmatic hernia [Recovered/Resolved]
  - Maternal exposure during pregnancy [Recovered/Resolved]

NARRATIVE: CASE EVENT DATE: 20230831
